FAERS Safety Report 6753788-9 (Version None)
Quarter: 2010Q2

REPORT INFORMATION
  Report Type: 
  Country: None (occurrence: None)
  Receive Date: 20100603
  Receipt Date: 20100527
  Transmission Date: 20101027
  Serious: Yes (Life-Threatening)
  Sender: FDA-Public Use
  Company Number: JP-JNJFOC-20100600812

PATIENT
  Sex: Male

DRUGS (8)
  1. CRAVIT [Suspect]
     Indication: BRONCHITIS
     Route: 048
  2. ELCATONIN [Concomitant]
     Indication: HYPERCALCAEMIA
     Route: 030
  3. NICERGOLINE [Concomitant]
     Indication: CEREBRAL INFARCTION
     Route: 048
  4. ADETPHOS [Concomitant]
     Indication: CEREBRAL INFARCTION
     Route: 048
  5. LANSOPRAZOLE [Concomitant]
     Indication: OESOPHAGITIS
     Route: 048
  6. PURSENNID [Concomitant]
     Indication: CONSTIPATION
     Route: 048
  7. ACTONEL [Concomitant]
     Indication: OSTEOPOROSIS
     Route: 048
  8. FLIVAS [Concomitant]
     Indication: BENIGN PROSTATIC HYPERPLASIA
     Route: 048

REACTIONS (1)
  - HYPOGLYCAEMIC COMA [None]
